FAERS Safety Report 23225498 (Version 1)
Quarter: 2023Q4

REPORT INFORMATION
  Report Type: Spontaneous
  Country: IT (occurrence: IT)
  Receive Date: 20231124
  Receipt Date: 20231124
  Transmission Date: 20240109
  Serious: Yes (Other)
  Sender: FDA-Public Use
  Company Number: IT-002147023-NVSC2023IT226051

PATIENT
  Sex: Male

DRUGS (2)
  1. BEOVU [Suspect]
     Active Substance: BROLUCIZUMAB-DBLL
     Indication: Neovascular age-related macular degeneration
     Dosage: 120 MG (1 INTRAVITREAL)
     Route: 031
     Dates: start: 20230525
  2. BEOVU [Suspect]
     Active Substance: BROLUCIZUMAB-DBLL
     Dosage: 120 MG (1 INTRAVITREAL)
     Route: 031
     Dates: start: 20230914

REACTIONS (4)
  - Blindness [Unknown]
  - Vitritis [Recovered/Resolved with Sequelae]
  - Vision blurred [Unknown]
  - Retinal ischaemia [Unknown]

NARRATIVE: CASE EVENT DATE: 20230916
